FAERS Safety Report 8264215-7 (Version None)
Quarter: 2012Q2

REPORT INFORMATION
  Report Type: 
  Country: None (occurrence: None)
  Receive Date: 20120403
  Receipt Date: 20120330
  Transmission Date: 20120825
  Serious: Yes (Life-Threatening, Hospitalization, Other)
  Sender: FDA-Public Use
  Company Number: ADR-2011-10054

PATIENT
  Age: 47 Year
  Sex: Female

DRUGS (4)
  1. FENTANYL [Concomitant]
  2. LIORESAL [Suspect]
     Indication: MUSCLE SPASTICITY
     Dosage: 693.75 MCG, DAILY, INTR
     Route: 037
  3. HYDROMORPHONE HCL [Concomitant]
  4. BUPIVACAINE HCL [Concomitant]

REACTIONS (3)
  - THERAPEUTIC RESPONSE DECREASED [None]
  - INCISION SITE INFECTION [None]
  - UNDERDOSE [None]
